FAERS Safety Report 4901945-6 (Version None)
Quarter: 2006Q1

REPORT INFORMATION
  Report Type: 
  Country: None (occurrence: None)
  Receive Date: 20060206
  Receipt Date: 20060105
  Transmission Date: 20060701
  Serious: Yes (Hospitalization)
  Sender: FDA-Public Use
  Company Number: US-ABBOTT-06P-163-0321278-00

PATIENT
  Sex: Female
  Weight: 74.91 kg

DRUGS (7)
  1. HUMIRA [Suspect]
     Indication: RHEUMATOID ARTHRITIS
     Route: 058
     Dates: start: 20040101, end: 20051128
  2. FLUTICASONE PROPIONATE [Concomitant]
     Indication: CHRONIC OBSTRUCTIVE PULMONARY DISEASE
     Route: 055
  3. CALCIUM GLUCONATE [Concomitant]
     Indication: MINERAL SUPPLEMENTATION
     Route: 048
  4. FISH OIL [Concomitant]
     Indication: MEDICAL DIET
     Route: 048
  5. MULTIVITAMIN [Concomitant]
     Indication: VITAMIN SUPPLEMENTATION
     Route: 048
  6. ERGOCALCIFEROL [Concomitant]
     Indication: VITAMIN SUPPLEMENTATION
     Route: 048
  7. SALBUTAMOL [Concomitant]
     Indication: WHEEZING
     Route: 055

REACTIONS (7)
  - BACK PAIN [None]
  - COUGH [None]
  - HIATUS HERNIA [None]
  - LARYNGEAL OEDEMA [None]
  - RHEUMATOID NODULE [None]
  - SINUSITIS [None]
  - SKIN LESION [None]
